FAERS Safety Report 16360642 (Version 1)
Quarter: 2019Q2

REPORT INFORMATION
  Report Type: Spontaneous
  Country: FR (occurrence: FR)
  Receive Date: 20190528
  Receipt Date: 20190528
  Transmission Date: 20190711
  Serious: Yes (Death, Other)
  Sender: FDA-Public Use
  Company Number: FR-BAYER-2019-097665

PATIENT
  Age: 79 Year
  Sex: Male

DRUGS (1)
  1. NEXAVAR [Suspect]
     Active Substance: SORAFENIB
     Indication: HEPATIC CANCER
     Dosage: 400 MG, BID
     Dates: start: 201709, end: 201801

REACTIONS (11)
  - Blood albumin abnormal [None]
  - Ascites [None]
  - Hepatic function abnormal [None]
  - Eastern Cooperative Oncology Group performance status worsened [None]
  - General physical health deterioration [None]
  - Weight decreased [None]
  - Alpha 1 foetoprotein increased [None]
  - Blood pressure increased [Recovered/Resolved]
  - Blood bilirubin increased [None]
  - Oedema peripheral [None]
  - Diarrhoea [None]

NARRATIVE: CASE EVENT DATE: 2017
